FAERS Safety Report 10010900 (Version 2)
Quarter: 2014Q2

REPORT INFORMATION
  Report Type: Spontaneous
  Country: GB (occurrence: GB)
  Receive Date: 20140314
  Receipt Date: 20140620
  Transmission Date: 20141212
  Serious: Yes (Hospitalization, Other)
  Sender: FDA-Public Use
  Company Number: GB-JNJFOC-20140300891

PATIENT
  Age: 78 Year
  Sex: Male

DRUGS (9)
  1. ZYTIGA [Suspect]
     Indication: PROSTATE CANCER
     Route: 048
     Dates: start: 20140115, end: 20140224
  2. PREDNISOLONE [Suspect]
     Indication: PROSTATE CANCER
     Route: 065
     Dates: start: 20140115, end: 20140224
  3. AMLODIPINE [Concomitant]
     Route: 048
  4. BENDROFLUMETHIAZIDE [Concomitant]
     Route: 048
  5. ASPIRIN [Concomitant]
     Route: 048
  6. MOVICOL [Concomitant]
     Route: 048
  7. PARACETAMOL [Concomitant]
     Route: 048
  8. SIMVASTATIN [Concomitant]
     Route: 048
  9. SIMVASTATIN [Concomitant]
     Route: 048

REACTIONS (10)
  - Liver function test abnormal [Recovered/Resolved]
  - Salmonellosis [Recovered/Resolved]
  - Hepatic steatosis [Unknown]
  - Herpes simplex [Unknown]
  - Spinal osteoarthritis [Unknown]
  - Arthritis [Unknown]
  - Renal failure acute [Recovered/Resolved]
  - Duodenal polyp [Unknown]
  - Electrolyte imbalance [Unknown]
  - Oesophagitis [Unknown]
